FAERS Safety Report 6769481-2 (Version None)
Quarter: 2010Q2

REPORT INFORMATION
  Report Type: 
  Country: None (occurrence: None)
  Receive Date: 20100615
  Receipt Date: 20100607
  Transmission Date: 20101027
  Serious: Yes (Other)
  Sender: FDA-Public Use
  Company Number: GB-AMGEN-QUU414257

PATIENT
  Sex: Male

DRUGS (2)
  1. ENBREL [Suspect]
     Indication: ANKYLOSING SPONDYLITIS
     Dosage: UNKNOWN
     Dates: start: 20060101, end: 20090101
  2. HUMIRA [Suspect]
     Dosage: UNKNOWN

REACTIONS (3)
  - DACTYLITIS [None]
  - DRUG INEFFECTIVE [None]
  - PSORIASIS [None]
